FAERS Safety Report 5657317-2 (Version None)
Quarter: 2008Q1

REPORT INFORMATION
  Report Type: 
  Country: None (occurrence: None)
  Receive Date: 20080310
  Receipt Date: 20080229
  Transmission Date: 20080703
  Serious: Yes (Other)
  Sender: FDA-Public Use
  Company Number: PHFR2008GB00478

PATIENT
  Age: 64 Year
  Sex: Female
  Weight: 81.5 kg

DRUGS (2)
  1. GLEEVEC [Suspect]
     Indication: CHRONIC MYELOID LEUKAEMIA
     Dosage: 400MG/DAY
     Route: 048
     Dates: start: 20060810
  2. GLEEVEC [Suspect]
     Dosage: 600MG/DAY
     Route: 048

REACTIONS (6)
  - MUSCLE SPASMS [None]
  - MUSCULOSKELETAL PAIN [None]
  - NERVE COMPRESSION [None]
  - NEUROPATHY PERIPHERAL [None]
  - PARAESTHESIA [None]
  - THERAPEUTIC RESPONSE DECREASED [None]
